FAERS Safety Report 10017023 (Version 1)
Quarter: 2014Q1

REPORT INFORMATION
  Report Type: Spontaneous
  Country: US (occurrence: US)
  Receive Date: 20140318
  Receipt Date: 20140318
  Transmission Date: 20141002
  Serious: No
  Sender: FDA-Public Use
  Company Number: US-BIOGENIDEC-2014BI021948

PATIENT
  Sex: Female

DRUGS (1)
  1. AVONEX [Suspect]
     Indication: ACCIDENTAL EXPOSURE TO PRODUCT
     Dates: start: 20140304, end: 20140304

REACTIONS (2)
  - Accidental exposure to product [Recovered/Resolved]
  - Feeling hot [Not Recovered/Not Resolved]
